FAERS Safety Report 9786155 (Version 1)
Quarter: 2013Q4

REPORT INFORMATION
  Report Type: Spontaneous
  Country: US (occurrence: None)
  Receive Date: 20131224
  Receipt Date: 20131224
  Transmission Date: 20140711
  Serious: Yes (Other)
  Sender: FDA-Public Use
  Company Number: NZ-20130013

PATIENT
  Age: 54 Year
  Sex: Female

DRUGS (1)
  1. DOTAREM (GADOTERIC ACID), 13GS736A [Suspect]
     Indication: NUCLEAR MAGNETIC RESONANCE IMAGING
     Dosage: 10 ML (10 ML, 1 IN 1 D)
     Route: 042
     Dates: start: 20131209, end: 20131209

REACTIONS (4)
  - Sneezing [None]
  - Eyelid oedema [None]
  - Nasal congestion [None]
  - Rash [None]
